FAERS Safety Report 20738368 (Version 2)
Quarter: 2025Q1

REPORT INFORMATION
  Report Type: Report from Study
  Country: CA (occurrence: CA)
  Receive Date: 20220422
  Receipt Date: 20250131
  Transmission Date: 20250409
  Serious: Yes (Hospitalization, Other)
  Sender: RANBAXY
  Company Number: CA-SUN PHARMACEUTICAL INDUSTRIES LTD-2022R1-333876

PATIENT
  Age: 69 Year
  Sex: Female

DRUGS (3)
  1. TILDRAKIZUMAB [Suspect]
     Active Substance: TILDRAKIZUMAB
     Indication: Psoriasis
     Route: 058
     Dates: start: 20211221
  2. TILDRAKIZUMAB [Suspect]
     Active Substance: TILDRAKIZUMAB
     Route: 058
  3. TILDRAKIZUMAB [Suspect]
     Active Substance: TILDRAKIZUMAB
     Route: 058

REACTIONS (7)
  - Malignant melanoma [Unknown]
  - Seizure [Recovered/Resolved]
  - Skin neoplasm excision [Unknown]
  - Illness [Unknown]
  - Product dose omission issue [Unknown]
  - Seborrhoeic dermatitis [Unknown]
  - Stress [Not Recovered/Not Resolved]

NARRATIVE: CASE EVENT DATE: 20220405
